FAERS Safety Report 22311036 (Version 4)
Quarter: 2023Q4

REPORT INFORMATION
  Report Type: Spontaneous
  Country: US (occurrence: US)
  Receive Date: 20230511
  Receipt Date: 20231201
  Transmission Date: 20240109
  Serious: Yes (Hospitalization, Other)
  Sender: FDA-Public Use
  Company Number: US-PFIZER INC-PV202300080933

PATIENT
  Age: 80 Year
  Sex: Female
  Weight: 57.596 kg

DRUGS (4)
  1. IBRANCE [Suspect]
     Active Substance: PALBOCICLIB
     Indication: Breast cancer stage IV
     Dosage: 21 DAY ON 7 DAYS OFF
     Route: 048
     Dates: start: 202201
  2. IBRANCE [Suspect]
     Active Substance: PALBOCICLIB
     Dosage: 1 TABLET DAILY FOR 21 DAYS, THEN 7 DAYS OFF
     Route: 048
     Dates: start: 202310
  3. FASLODEX [Concomitant]
     Active Substance: FULVESTRANT
     Dosage: UNK (1 X MONTHS)
     Dates: start: 202201
  4. XGEVA [Concomitant]
     Active Substance: DENOSUMAB
     Dosage: UNK (83 MONTHS)
     Dates: start: 202202

REACTIONS (7)
  - Full blood count decreased [Not Recovered/Not Resolved]
  - Fatigue [Not Recovered/Not Resolved]
  - Neutropenia [Not Recovered/Not Resolved]
  - Glossodynia [Unknown]
  - Swollen tongue [Unknown]
  - Tongue ulceration [Unknown]
  - Speech disorder [Unknown]

NARRATIVE: CASE EVENT DATE: 20231023
